FAERS Safety Report 21161443 (Version 3)
Quarter: 2022Q3

REPORT INFORMATION
  Report Type: Spontaneous
  Country: DE (occurrence: DE)
  Receive Date: 20220802
  Receipt Date: 20220906
  Transmission Date: 20221027
  Serious: Yes (Other)
  Sender: FDA-Public Use
  Company Number: DE-ROCHE-3098195

PATIENT
  Age: 31 Year
  Sex: Male
  Weight: 88 kg

DRUGS (9)
  1. PACLITAXEL [Suspect]
     Active Substance: PACLITAXEL
     Indication: HER2 positive breast cancer
     Dosage: WITH LOADING DOSE HERCEPTIN I.V. 6 MG/KG
     Route: 065
     Dates: start: 20210820
  2. ABRAXANE [Suspect]
     Active Substance: PACLITAXEL
     Indication: HER2 positive breast cancer
     Dosage: TWO TIMES IN COMBINATION WITH HERCEPTIN MAINTENANCE DOSE, ROA-20045000
     Route: 042
     Dates: start: 20210910
  3. HERCEPTIN [Suspect]
     Active Substance: TRASTUZUMAB
     Indication: HER2 positive breast cancer
     Dosage: AS LOADING DOSE WITH PACLITAXEL (TAXOL), ROA-20045000
     Route: 042
     Dates: start: 20210820
  4. HERCEPTIN [Suspect]
     Active Substance: TRASTUZUMAB
     Dosage: MAINTENANCE DOSE WITH ABRAXANE, ROA-20045000
     Route: 042
     Dates: start: 20210910
  5. HERCEPTIN [Suspect]
     Active Substance: TRASTUZUMAB
     Dosage: ROA-20045000
     Route: 042
     Dates: start: 20211001
  6. HERCEPTIN [Suspect]
     Active Substance: TRASTUZUMAB
     Dosage: MAINTENANCE DOSE WITH ABRAXANE, ROA-20045000
     Route: 042
     Dates: start: 20210910
  7. HERCEPTIN [Suspect]
     Active Substance: TRASTUZUMAB
     Indication: Breast cancer
     Dosage: THREE TIMES IN COMBINATION WITH ABRAXANE, IN COMBINATION WITH PACLITAXEL, ROA-20066000
     Route: 058
     Dates: start: 20210820
  8. HERCEPTIN [Suspect]
     Active Substance: TRASTUZUMAB
     Dosage: COURSE 4 TO 18, ROA-20066000
     Route: 058
     Dates: start: 20210910
  9. HERCEPTIN [Suspect]
     Active Substance: TRASTUZUMAB
     Dosage: ROA-20066000
     Route: 058
     Dates: start: 20211001

REACTIONS (4)
  - Off label use [Unknown]
  - Cardiac failure [Recovering/Resolving]
  - Ejection fraction decreased [Recovered/Resolved]
  - Hypersensitivity [Unknown]

NARRATIVE: CASE EVENT DATE: 20211021
